FAERS Safety Report 20689956 (Version 1)
Quarter: 2022Q2

REPORT INFORMATION
  Report Type: Spontaneous
  Country: HR (occurrence: HR)
  Receive Date: 20220408
  Receipt Date: 20220408
  Transmission Date: 20220721
  Serious: Yes (Other)
  Sender: FDA-Public Use
  Company Number: None

PATIENT
  Sex: Female

DRUGS (5)
  1. CONTROLOC [Suspect]
     Active Substance: PANTOPRAZOLE SODIUM
     Dosage: 120 MG, 1X/DAY
     Route: 048
     Dates: start: 20211213, end: 20211213
  2. ALPRAZOLAM [Suspect]
     Active Substance: ALPRAZOLAM
     Dosage: 29 MG, 1X/DAY
     Route: 048
     Dates: start: 20211213, end: 20211213
  3. DULOXETINE HYDROCHLORIDE [Suspect]
     Active Substance: DULOXETINE HYDROCHLORIDE
     Dosage: 420 MILLIGRAM, QD
     Route: 048
     Dates: start: 20211213, end: 20211213
  4. ZOLPIDEM TARTRATE [Suspect]
     Active Substance: ZOLPIDEM TARTRATE
     Dosage: 200 MILLIGRAM, QD
     Route: 048
     Dates: start: 20211213, end: 20211213
  5. PROMAZINE HYDROCHLORIDE [Suspect]
     Active Substance: PROMAZINE HYDROCHLORIDE
     Dosage: 500 MILLIGRAM, QD
     Route: 048
     Dates: start: 20211213, end: 20211213

REACTIONS (5)
  - Suicide attempt [Unknown]
  - Hypotension [Unknown]
  - Somnolence [Unknown]
  - Tachycardia [Unknown]
  - Intentional overdose [Unknown]

NARRATIVE: CASE EVENT DATE: 20211213
